FAERS Safety Report 5406700-9 (Version None)
Quarter: 2007Q3

REPORT INFORMATION
  Report Type: 
  Country: None (occurrence: None)
  Receive Date: 20070803
  Receipt Date: 20070803
  Transmission Date: 20080115
  Serious: Yes (Other)
  Sender: FDA-Public Use
  Company Number: None

PATIENT
  Age: 18 Year
  Sex: Female
  Weight: 52.1637 kg

DRUGS (1)
  1. CORICIDIN [Suspect]
     Indication: EUPHORIC MOOD
     Dates: start: 20070101, end: 20070710

REACTIONS (6)
  - ABNORMAL BEHAVIOUR [None]
  - ALCOHOL USE [None]
  - ARTHRALGIA [None]
  - DRUG ABUSER [None]
  - DRUG TOXICITY [None]
  - INTENTIONAL DRUG MISUSE [None]
